FAERS Safety Report 8020636-9 (Version None)
Quarter: 2012Q1

REPORT INFORMATION
  Report Type: 
  Country: None (occurrence: None)
  Receive Date: 20120103
  Receipt Date: 20111222
  Transmission Date: 20120608
  Serious: Yes (Other)
  Sender: FDA-Public Use
  Company Number: US-ASTRAZENECA-2011SE60389

PATIENT
  Age: 83 Year
  Sex: Male

DRUGS (2)
  1. SPRIVA [Suspect]
  2. SYMBICORT [Suspect]
     Route: 055

REACTIONS (3)
  - MYOCARDIAL INFARCTION [None]
  - VISUAL IMPAIRMENT [None]
  - DIABETES MELLITUS [None]
